FAERS Safety Report 16721258 (Version 1)
Quarter: 2019Q3

REPORT INFORMATION
  Report Type: Spontaneous
  Country: US (occurrence: US)
  Receive Date: 20190703
  Receipt Date: 20190703
  Transmission Date: 20191005
  Serious: No
  Sender: FDA-Public Use
  Company Number: None

PATIENT
  Age: 71 Year
  Sex: Female

DRUGS (1)
  1. XALKORI [Suspect]
     Active Substance: CRIZOTINIB
     Indication: NEOPLASM MALIGNANT
     Route: 048
     Dates: start: 201906, end: 20190703

REACTIONS (4)
  - White blood cell count decreased [None]
  - Febrile neutropenia [None]
  - Fatigue [None]
  - Red blood cell count decreased [None]

NARRATIVE: CASE EVENT DATE: 20190703
